FAERS Safety Report 4860877-2 (Version None)
Quarter: 2005Q4

REPORT INFORMATION
  Report Type: 
  Country: None (occurrence: None)
  Receive Date: 20051216
  Receipt Date: 20051216
  Transmission Date: 20060501
  Serious: Yes (Other)
  Sender: FDA-Public Use
  Company Number: None

PATIENT
  Age: 14 Year
  Sex: Female
  Weight: 106.5953 kg

DRUGS (3)
  1. ALBUTEROL [Suspect]
     Indication: ASTHMA
     Dosage: 2 PUFFS (INHALED) Q 4H PRN
     Route: 055
     Dates: start: 20050712, end: 20051209
  2. CLARINEX [Concomitant]
  3. ASTELIN [Concomitant]

REACTIONS (3)
  - ACTIVITIES OF DAILY LIVING IMPAIRED [None]
  - DYSPNOEA [None]
  - SLEEP DISORDER DUE TO A GENERAL MEDICAL CONDITION [None]
